FAERS Safety Report 15640252 (Version 1)
Quarter: 2018Q4

REPORT INFORMATION
  Report Type: Spontaneous
  Country: US (occurrence: US)
  Receive Date: 20181120
  Receipt Date: 20181120
  Transmission Date: 20190205
  Serious: Yes (Other)
  Sender: FDA-Public Use
  Company Number: US-COOPERSURGICAL, INC.-US-2018CPS033664

PATIENT

DRUGS (1)
  1. PARAGARD T 380A [Suspect]
     Active Substance: COPPER
     Indication: CONTRACEPTION
     Dosage: UNK
     Dates: start: 201209, end: 2014

REACTIONS (10)
  - Insomnia [Unknown]
  - Haemorrhage [Recovered/Resolved]
  - High risk pregnancy [Recovered/Resolved]
  - Pelvic pain [Recovered/Resolved]
  - Iron deficiency [Unknown]
  - Anxiety [Unknown]
  - Depression [Unknown]
  - Pelvic inflammatory disease [Recovered/Resolved]
  - Menopausal symptoms [Unknown]
  - Endometriosis [Recovered/Resolved]

NARRATIVE: CASE EVENT DATE: 2012
